FAERS Safety Report 12721105 (Version 1)
Quarter: 2016Q3

REPORT INFORMATION
  Report Type: Spontaneous
  Country: US (occurrence: US)
  Receive Date: 20160907
  Receipt Date: 20160907
  Transmission Date: 20161109
  Serious: Yes (Other)
  Sender: FDA-Public Use
  Company Number: None

PATIENT
  Age: 53 Year

DRUGS (2)
  1. FENTANYL SYRINGE PCA [Suspect]
     Active Substance: FENTANYL
  2. FENTANYL MONOJECT SYRINGE #2K8673 [Suspect]
     Active Substance: FENTANYL

REACTIONS (1)
  - Device defective [None]

NARRATIVE: CASE EVENT DATE: 20160809
